FAERS Safety Report 13594030 (Version 1)
Quarter: 2017Q2

REPORT INFORMATION
  Report Type: Other
  Country: LK (occurrence: LK)
  Receive Date: 20170530
  Receipt Date: 20170530
  Transmission Date: 20170830
  Serious: Yes (Other)
  Sender: FDA-Public Use
  Company Number: LK-MERCK KGAA-2021372

PATIENT
  Age: 33 Year
  Sex: Female

DRUGS (1)
  1. NOVOTHYROX [Suspect]
     Active Substance: LEVOTHYROXINE SODIUM
     Indication: POST PROCEDURAL HYPOTHYROIDISM

REACTIONS (4)
  - Complication of pregnancy [Unknown]
  - Live birth [Recovered/Resolved]
  - Premature delivery [Recovered/Resolved]
  - Maternal exposure during pregnancy [Recovered/Resolved]
